FAERS Safety Report 5252330-1 (Version None)
Quarter: 2007Q1

REPORT INFORMATION
  Report Type: 
  Country: None (occurrence: None)
  Receive Date: 20070301
  Receipt Date: 20060508
  Transmission Date: 20070707
  Serious: No
  Sender: FDA-Public Use
  Company Number: US-BRISTOL-MYERS SQUIBB COMPANY-13371026

PATIENT
  Sex: Female

DRUGS (6)
  1. PARAPLATIN [Suspect]
     Indication: OVARIAN CANCER
     Route: 042
  2. TAXOL [Suspect]
     Indication: OVARIAN CANCER
  3. BENADRYL [Concomitant]
     Indication: PREMEDICATION
  4. PEPCID [Concomitant]
     Indication: PREMEDICATION
  5. DECADRON [Concomitant]
     Indication: PREMEDICATION
  6. TYLENOL [Concomitant]
     Indication: PREMEDICATION

REACTIONS (2)
  - COUGH [None]
  - SINUS CONGESTION [None]
